FAERS Safety Report 9347311 (Version 1)
Quarter: 2013Q2

REPORT INFORMATION
  Report Type: Spontaneous
  Country: US (occurrence: US)
  Receive Date: 20130613
  Receipt Date: 20130613
  Transmission Date: 20140414
  Serious: Yes (Death, Hospitalization)
  Sender: FDA-Public Use
  Company Number: US-BAYER-2013-070909

PATIENT
  Age: 44 Year
  Sex: Female
  Weight: 54.7 kg

DRUGS (2)
  1. YAZ [Suspect]
     Indication: MENSTRUAL CYCLE MANAGEMENT
  2. YAZ [Suspect]
     Indication: ACNE

REACTIONS (2)
  - Embolic stroke [Fatal]
  - Cerebral infarction [Fatal]
